FAERS Safety Report 9546841 (Version 1)
Quarter: 2013Q3

REPORT INFORMATION
  Report Type: Spontaneous
  Country: US (occurrence: None)
  Receive Date: 20130920
  Receipt Date: 20130920
  Transmission Date: 20140515
  Serious: No
  Sender: FDA-Public Use
  Company Number: None

PATIENT
  Sex: 0

DRUGS (2)
  1. HEPARIN SODIUM AND 0.9% SODIUM CHLORIDE INJECTION [Suspect]
     Dosage: 1000 UNITS PER 500 ML (2 UNITS/ML)
  2. CALCIUM GLUCONATE [Suspect]

REACTIONS (3)
  - Medication error [None]
  - Device occlusion [None]
  - Product deposit [None]
